FAERS Safety Report 7801593-4 (Version None)
Quarter: 2011Q4

REPORT INFORMATION
  Report Type: 
  Country: None (occurrence: None)
  Receive Date: 20111007
  Receipt Date: 20110926
  Transmission Date: 20120403
  Serious: Yes (Other)
  Sender: FDA-Public Use
  Company Number: ES-RANBAXY-2011RR-48595

PATIENT
  Age: 85 Year
  Sex: Female

DRUGS (1)
  1. ACETAMINOPHEN [Suspect]
     Indication: OSTEOARTHRITIS
     Dosage: 1950 MG/DAY
     Route: 065

REACTIONS (3)
  - ARTHRALGIA [None]
  - LIVER INJURY [None]
  - THROMBOCYTOPENIA [None]
